FAERS Safety Report 17960703 (Version 1)
Quarter: 2020Q2

REPORT INFORMATION
  Report Type: Spontaneous
  Country: US (occurrence: US)
  Receive Date: 20200629
  Receipt Date: 20200629
  Transmission Date: 20200714
  Serious: No
  Sender: FDA-Public Use
  Company Number: US-ROCHE-2405377

PATIENT
  Sex: Female

DRUGS (13)
  1. XELODA [Suspect]
     Active Substance: CAPECITABINE
     Indication: BREAST CANCER
     Route: 048
     Dates: start: 20190411
  2. VITAMIN D2 [Concomitant]
     Active Substance: ERGOCALCIFEROL
  3. LEVOTHYROXINE. [Concomitant]
     Active Substance: LEVOTHYROXINE
  4. AMOXICILLIN. [Concomitant]
     Active Substance: AMOXICILLIN
  5. EXEMESTANE. [Concomitant]
     Active Substance: EXEMESTANE
  6. DYAZIDE [Concomitant]
     Active Substance: HYDROCHLOROTHIAZIDE\TRIAMTERENE
  7. TAMOXIFEN CITRATE. [Concomitant]
     Active Substance: TAMOXIFEN CITRATE
  8. LEVAQUIN [Concomitant]
     Active Substance: LEVOFLOXACIN
  9. IRBESARTAN. [Concomitant]
     Active Substance: IRBESARTAN
  10. OTHER ANTIALLERGICS [Concomitant]
  11. LETROZOLE. [Concomitant]
     Active Substance: LETROZOLE
  12. METHYLPREDNISOLONE. [Concomitant]
     Active Substance: METHYLPREDNISOLONE
  13. XANAX [Concomitant]
     Active Substance: ALPRAZOLAM

REACTIONS (1)
  - Hand-foot-and-mouth disease [Unknown]
